FAERS Safety Report 8515713-X (Version None)
Quarter: 2012Q3

REPORT INFORMATION
  Report Type: 
  Country: None (occurrence: None)
  Receive Date: 20120717
  Receipt Date: 20120712
  Transmission Date: 20120928
  Serious: Yes (Other)
  Sender: FDA-Public Use
  Company Number: PHEH2012US012998

PATIENT
  Sex: Female

DRUGS (2)
  1. MYFORTIC [Suspect]
     Indication: RENAL TRANSPLANT
     Dosage: 180 MG, BID
     Route: 048
  2. NEORAL [Concomitant]
     Dosage: 75 MG, BID

REACTIONS (3)
  - NEUROPATHY PERIPHERAL [None]
  - RENAL FAILURE [None]
  - KIDNEY TRANSPLANT REJECTION [None]
